FAERS Safety Report 6205901-X (Version None)
Quarter: 2009Q2

REPORT INFORMATION
  Report Type: 
  Country: None (occurrence: None)
  Receive Date: 20090527
  Receipt Date: 20090513
  Transmission Date: 20091009
  Serious: No
  Sender: FDA-Public Use
  Company Number: US-ABBOTT-09P-163-0573168-00

PATIENT
  Sex: Male
  Weight: 111.23 kg

DRUGS (10)
  1. SIMCOR [Suspect]
     Indication: BLOOD CHOLESTEROL INCREASED
     Dosage: 500/20 MILLIGRAMS EVERY NIGHT
     Dates: start: 20090401
  2. TYLENOL [Concomitant]
     Indication: DRUG USE FOR UNKNOWN INDICATION
  3. OXYCODONE HCL [Concomitant]
     Indication: DRUG USE FOR UNKNOWN INDICATION
  4. IBUPROFEN [Concomitant]
     Indication: DRUG USE FOR UNKNOWN INDICATION
  5. MICARDIS [Concomitant]
     Indication: DRUG USE FOR UNKNOWN INDICATION
  6. GABAPENTIN [Concomitant]
     Indication: DRUG USE FOR UNKNOWN INDICATION
  7. MULTI-VITAMINS [Concomitant]
     Indication: DRUG USE FOR UNKNOWN INDICATION
  8. ACTOS [Concomitant]
     Indication: DRUG USE FOR UNKNOWN INDICATION
     Dosage: 15/500 MILLIGRAMS TWICE DAILY
  9. METFORMIN HCL [Concomitant]
     Indication: DRUG USE FOR UNKNOWN INDICATION
  10. ALLI DIET PILL [Concomitant]
     Indication: DRUG USE FOR UNKNOWN INDICATION

REACTIONS (1)
  - FLUSHING [None]
